FAERS Safety Report 7218463-5 (Version None)
Quarter: 2011Q1

REPORT INFORMATION
  Report Type: 
  Country: None (occurrence: None)
  Receive Date: 20110110
  Receipt Date: 20110107
  Transmission Date: 20110831
  Serious: Yes (Hospitalization)
  Sender: FDA-Public Use
  Company Number: US-PFIZER INC-2011004939

PATIENT
  Sex: Male
  Weight: 95.238 kg

DRUGS (1)
  1. CHANTIX [Suspect]
     Indication: SMOKING CESSATION THERAPY
     Dosage: UNK
     Route: 048
     Dates: start: 20101201, end: 20101201

REACTIONS (2)
  - APPENDICECTOMY [None]
  - NIGHTMARE [None]
